FAERS Safety Report 8903514 (Version 2)
Quarter: 2013Q1

REPORT INFORMATION
  Report Type: Report from Study
  Country: JP (occurrence: JP)
  Receive Date: 20121113
  Receipt Date: 20130124
  Transmission Date: 20140127
  Serious: Yes (Other)
  Sender: FDA-Public Use
  Company Number: JP-TEVA-2011003243

PATIENT
  Age: 67 Year
  Sex: Male
  Weight: 65 kg

DRUGS (15)
  1. TREANDA [Suspect]
     Indication: MANTLE CELL LYMPHOMA
     Route: 042
     Dates: start: 20110119, end: 20110120
  2. TREANDA [Suspect]
     Dosage: REGIMEN #2
     Route: 042
     Dates: start: 20110209, end: 20110210
  3. TREANDA [Suspect]
     Dosage: REGIMEN #3
     Route: 042
     Dates: start: 20110414, end: 20110414
  4. TREANDA [Suspect]
     Dosage: REGIMEN #4
     Route: 042
     Dates: start: 20110526, end: 20110527
  5. TREANDA [Suspect]
     Dosage: REGIMEN #5
     Route: 042
     Dates: start: 20110701, end: 20110702
  6. TREANDA [Suspect]
     Dosage: REGIMEN #6
     Route: 042
     Dates: start: 20110908
  7. TREANDA [Suspect]
     Dosage: REGIMEN #7
     Route: 042
     Dates: start: 20111104
  8. TREANDA [Suspect]
     Dosage: REGIMEN #8
     Route: 042
     Dates: start: 20120104
  9. NATEGLINIDE [Concomitant]
  10. MIGLITOL [Concomitant]
  11. SULFAMETHOXAZOLE AND TRIMETHOPRIM [Concomitant]
  12. FLUCONAZOLE [Concomitant]
  13. ACICLOVIR [Concomitant]
     Dates: start: 20110127
  14. PIOGLITAZONE HYDROCHLORIDE [Concomitant]
     Dates: start: 20110303
  15. GRANISETRON HYDROCHLORIDE [Concomitant]
     Dates: start: 20110119, end: 20110414

REACTIONS (9)
  - Lymphocyte count decreased [Recovered/Resolved]
  - Neutrophil count decreased [Recovered/Resolved]
  - Platelet count decreased [Recovered/Resolved]
  - White blood cell count decreased [Recovered/Resolved]
  - C-reactive protein increased [Recovered/Resolved]
  - Red blood cell count decreased [Recovered/Resolved]
  - Haematocrit decreased [Recovered/Resolved]
  - Haemoglobin decreased [Recovered/Resolved]
  - Disease progression [Fatal]
